FAERS Safety Report 5695296-2 (Version None)
Quarter: 2008Q2

REPORT INFORMATION
  Report Type: 
  Country: None (occurrence: None)
  Receive Date: 20080404
  Receipt Date: 20080324
  Transmission Date: 20081010
  Serious: Yes (Other)
  Sender: FDA-Public Use
  Company Number: US-PFIZER INC-2008028166

PATIENT

DRUGS (1)
  1. PENICILLIN G PROCAINE [Suspect]

REACTIONS (2)
  - ANAPHYLACTIC REACTION [None]
  - HEART INJURY [None]
